FAERS Safety Report 24621524 (Version 4)
Quarter: 2025Q4

REPORT INFORMATION
  Report Type: Spontaneous
  Country: JP (occurrence: JP)
  Receive Date: 20241114
  Receipt Date: 20251015
  Transmission Date: 20260117
  Serious: Yes (Other)
  Sender: BRISTOL-MYERS SQUIBB COMPANY
  Company Number: JP-ONO-2024JP023090

PATIENT
  Age: 71 Year
  Sex: Female

DRUGS (4)
  1. OPDIVO [Suspect]
     Active Substance: NIVOLUMAB
     Indication: Gastric cancer
     Dosage: UNK
  2. OXALIPLATIN [Concomitant]
     Active Substance: OXALIPLATIN
     Indication: Gastric cancer
     Dosage: UNK
  3. FLUOROURACIL [Concomitant]
     Active Substance: FLUOROURACIL
     Indication: Gastric cancer
     Dosage: UNK
  4. LEVOFOLINATE [Concomitant]
     Indication: Gastric cancer
     Dosage: UNK

REACTIONS (2)
  - Immune-mediated cholangitis [Unknown]
  - Skin disorder [Unknown]
